FAERS Safety Report 4394813-2 (Version None)
Quarter: 2004Q3

REPORT INFORMATION
  Report Type: 
  Country: None (occurrence: None)
  Receive Date: 20040707
  Receipt Date: 20040624
  Transmission Date: 20050211
  Serious: Yes (Hospitalization)
  Sender: FDA-Public Use
  Company Number: 2004032024

PATIENT
  Age: 49 Year
  Sex: Female
  Weight: 72.5755 kg

DRUGS (4)
  1. GEODON [Suspect]
     Indication: PSYCHOTIC DISORDER
     Dosage: 160 MG (1 IN 1 D), ORAL
     Route: 048
  2. ESCITALOPRAM (ESCITALOPRAM) [Concomitant]
  3. TRAZODONE HYDROCHLORIED (TRAZADONE HYDROCHLORIDE) [Concomitant]
  4. CLONAZEPAM [Concomitant]

REACTIONS (8)
  - CARDIOMYOPATHY [None]
  - CHRONIC OBSTRUCTIVE AIRWAYS DISEASE [None]
  - DEPRESSION [None]
  - ELECTROCARDIOGRAM ST SEGMENT ABNORMAL [None]
  - HYPOTHYROIDISM [None]
  - MEDICATION ERROR [None]
  - OBESITY [None]
  - PERICARDIAL DISEASE [None]
